FAERS Safety Report 12749891 (Version 2)
Quarter: 2016Q3

REPORT INFORMATION
  Report Type: Spontaneous
  Country: US (occurrence: US)
  Receive Date: 20160916
  Receipt Date: 20160927
  Transmission Date: 20161109
  Serious: No
  Sender: FDA-Public Use
  Company Number: US-009507513-1609USA005931

PATIENT
  Age: 23 Year
  Sex: Female
  Weight: 70.75 kg

DRUGS (1)
  1. IMPLANON [Suspect]
     Active Substance: ETONOGESTREL
     Dosage: 3 YEAR IMPLANT (LEFT ARM)
     Route: 059
     Dates: start: 2012

REACTIONS (5)
  - Complication associated with device [Not Recovered/Not Resolved]
  - Amenorrhoea [Unknown]
  - Migration of implanted drug [Not Recovered/Not Resolved]
  - Incorrect drug administration duration [Unknown]
  - Weight increased [Unknown]

NARRATIVE: CASE EVENT DATE: 201409
